FAERS Safety Report 5942487-9 (Version None)
Quarter: 2008Q4

REPORT INFORMATION
  Report Type: 
  Country: None (occurrence: None)
  Receive Date: 20081105
  Receipt Date: 20081024
  Transmission Date: 20090506
  Serious: Yes (Death, Hospitalization)
  Sender: FDA-Public Use
  Company Number: MY-PFIZER INC-2008090444

PATIENT

DRUGS (1)
  1. SULPERAZON [Suspect]
     Route: 042

REACTIONS (2)
  - HAEMORRHAGE [None]
  - HYPOPROTHROMBINAEMIA [None]
